FAERS Safety Report 13274769 (Version 2)
Quarter: 2017Q1

REPORT INFORMATION
  Report Type: Report from Study
  Country: BR (occurrence: BR)
  Receive Date: 20170227
  Receipt Date: 20170327
  Transmission Date: 20170428
  Serious: Yes (Hospitalization)
  Sender: FDA-Public Use
  Company Number: BR-EMD SERONO-8143874

PATIENT
  Age: 22 Year
  Sex: Female

DRUGS (4)
  1. REBIF [Suspect]
     Active Substance: INTERFERON BETA-1A
     Indication: MULTIPLE SCLEROSIS
     Route: 058
     Dates: start: 20160906, end: 20170131
  2. DIPYRONE [Concomitant]
     Active Substance: DIPYRONE
     Indication: PRODUCT USED FOR UNKNOWN INDICATION
  3. QLAIRA [Concomitant]
     Active Substance: DIENOGEST\ESTRADIOL VALERATE
     Indication: PRODUCT USED FOR UNKNOWN INDICATION
  4. ESCITALOPRAM OXALATE. [Concomitant]
     Active Substance: ESCITALOPRAM OXALATE
     Indication: PRODUCT USED FOR UNKNOWN INDICATION

REACTIONS (8)
  - Drug intolerance [Unknown]
  - Chromaturia [Recovering/Resolving]
  - Drug-induced liver injury [Unknown]
  - Ocular icterus [Recovering/Resolving]
  - Pruritus [Recovering/Resolving]
  - Faeces discoloured [Recovering/Resolving]
  - Decreased appetite [Recovering/Resolving]
  - Feeling abnormal [Unknown]

NARRATIVE: CASE EVENT DATE: 201701
